FAERS Safety Report 5957079-5 (Version None)
Quarter: 2008Q4

REPORT INFORMATION
  Report Type: 
  Country: None (occurrence: None)
  Receive Date: 20081118
  Receipt Date: 20081107
  Transmission Date: 20090506
  Serious: Yes (Other)
  Sender: FDA-Public Use
  Company Number: PHHY2008DE14820

PATIENT
  Age: 74 Year
  Sex: Male

DRUGS (12)
  1. RASILEZ [Suspect]
     Dosage: 150 MG, QD
  2. RASILEZ [Suspect]
     Dosage: 300 MG, QD
  3. CARMEN [Suspect]
     Dosage: 10 MG, QD
  4. SULTANOL [Concomitant]
     Indication: EMPHYSEMA
     Dosage: UNK
  5. SYMBICORT TURBUHALER ^DRACO^ [Concomitant]
     Indication: EMPHYSEMA
     Dosage: 80 MG, UNK
  6. SYMBICORT TURBUHALER ^DRACO^ [Concomitant]
     Dosage: 160 MG, UNK
  7. DILTIAZEM HCL [Concomitant]
     Dosage: 90 MG, UNK
  8. DILTIAZEM HCL [Concomitant]
     Dosage: 60 MG, UNK
  9. DILTIAZEM [Concomitant]
  10. DOXAZOSIN MESYLATE [Concomitant]
     Dosage: 0.5 DF, QD
  11. DIOVAN [Concomitant]
     Dosage: 0.75 DF, QD
  12. DIOVAN [Concomitant]
     Dosage: 0.5 DF, QD

REACTIONS (5)
  - BLOOD PRESSURE INCREASED [None]
  - CHEST DISCOMFORT [None]
  - DYSPNOEA [None]
  - ELECTROCARDIOGRAM PQ INTERVAL [None]
  - HEART RATE DECREASED [None]
